FAERS Safety Report 7383383-2 (Version None)
Quarter: 2011Q1

REPORT INFORMATION
  Report Type: 
  Country: None (occurrence: None)
  Receive Date: 20110330
  Receipt Date: 20100521
  Transmission Date: 20110831
  Serious: No
  Sender: FDA-Public Use
  Company Number: US-BAYER-201023938NA

PATIENT
  Sex: Female

DRUGS (1)
  1. MIRENA [Suspect]
     Indication: CONTRACEPTION
     Dosage: 20 MCG/24HR, CONT
     Route: 015

REACTIONS (9)
  - ARTHRALGIA [None]
  - FURUNCLE [None]
  - VITREOUS FLOATERS [None]
  - ALOPECIA [None]
  - SKIN HYPERPIGMENTATION [None]
  - SKIN DISORDER [None]
  - HAIR TEXTURE ABNORMAL [None]
  - FATIGUE [None]
  - ANXIETY [None]
